FAERS Safety Report 6291387-6 (Version None)
Quarter: 2009Q3

REPORT INFORMATION
  Report Type: 
  Country: None (occurrence: None)
  Receive Date: 20090730
  Receipt Date: 20090722
  Transmission Date: 20100115
  Serious: Yes (Hospitalization)
  Sender: FDA-Public Use
  Company Number: JP-ABBOTT-09P-087-0587180-00

PATIENT
  Age: 15 Year
  Sex: Female

DRUGS (1)
  1. LEUPLIN DEPOT [Suspect]
     Indication: PRECOCIOUS PUBERTY
     Route: 058

REACTIONS (1)
  - STATUS EPILEPTICUS [None]
